FAERS Safety Report 9099015 (Version 2)
Quarter: 2013Q2

REPORT INFORMATION
  Report Type: Spontaneous
  Country: IT (occurrence: IT)
  Receive Date: 20130214
  Receipt Date: 20130520
  Transmission Date: 20140414
  Serious: Yes (Other)
  Sender: FDA-Public Use
  Company Number: IT-TEVA-385341ISR

PATIENT
  Age: 93 Year
  Sex: Female

DRUGS (4)
  1. AMIKACINA TEVA [Suspect]
     Indication: URINARY TRACT INFECTION
     Route: 041
     Dates: start: 20120227, end: 20120228
  2. NORMIX [Concomitant]
  3. LASIX [Concomitant]
  4. TACHIPIRINA [Concomitant]

REACTIONS (5)
  - Pyrexia [Not Recovered/Not Resolved]
  - Hypotension [Not Recovered/Not Resolved]
  - Oxygen saturation decreased [Not Recovered/Not Resolved]
  - Depressed level of consciousness [Not Recovered/Not Resolved]
  - Coma [Not Recovered/Not Resolved]
